FAERS Safety Report 14880053 (Version 3)
Quarter: 2022Q2

REPORT INFORMATION
  Report Type: Spontaneous
  Country: FR (occurrence: FR)
  Receive Date: 20180511
  Receipt Date: 20220512
  Transmission Date: 20220721
  Serious: Yes (Hospitalization)
  Sender: FDA-Public Use
  Company Number: FR-AGUETTANT-201800156

PATIENT
  Age: 10 Year
  Sex: Male
  Weight: 25 kg

DRUGS (14)
  1. SMOFLIPID [Suspect]
     Active Substance: FISH OIL\MEDIUM-CHAIN TRIGLYCERIDES\OLIVE OIL\SOYBEAN OIL
     Indication: Parenteral nutrition
     Dosage: UNKNOWN
     Route: 041
  2. POTASSIUM CHLORIDE [Suspect]
     Active Substance: POTASSIUM CHLORIDE
     Indication: Parenteral nutrition
     Dosage: UNKNOWN
     Route: 041
  3. ERGOCALCIFEROL\PHYTONADIONE\TOCOPHEROL\VITAMIN A PALMITATE [Suspect]
     Active Substance: ERGOCALCIFEROL\PHYTONADIONE\TOCOPHEROL\VITAMIN A PALMITATE
     Indication: Parenteral nutrition
     Dosage: UNKNOWN
     Route: 041
  4. VITAMINS [Suspect]
     Active Substance: VITAMINS
     Indication: Parenteral nutrition
     Dosage: UNKNOWN
     Route: 041
  5. SODIUM CHLORIDE [Suspect]
     Active Substance: SODIUM CHLORIDE
     Indication: Parenteral nutrition
     Dosage: UNKNOWN
     Route: 041
  6. RANITIDINE [Suspect]
     Active Substance: RANITIDINE
     Indication: Parenteral nutrition
     Dosage: UNKNOWN
     Route: 041
  7. .ALPHA.-GLUCOSE-1-PHOSPHATE [Suspect]
     Active Substance: .ALPHA.-GLUCOSE-1-PHOSPHATE
     Indication: Parenteral nutrition
     Dosage: UNKNOWN
     Route: 041
  8. .ALPHA.-GLUCOSE-1-PHOSPHATE [Suspect]
     Active Substance: .ALPHA.-GLUCOSE-1-PHOSPHATE
     Dosage: UNKNOWN
     Route: 041
  9. AMINO ACIDS, SOURCE UNSPECIFIED [Suspect]
     Active Substance: AMINO ACIDS, SOURCE UNSPECIFIED
     Indication: Parenteral nutrition
     Dosage: UNKNOWN
     Route: 041
  10. DEXTROSE [Suspect]
     Active Substance: DEXTROSE
     Indication: Parenteral nutrition
     Dosage: UNKNOWN
     Route: 041
  11. SODIUM SELENITE [Suspect]
     Active Substance: SODIUM SELENITE
     Indication: Parenteral nutrition
     Dosage: UNKNOWN
     Route: 041
  12. CALCIUM GLUCONATE [Suspect]
     Active Substance: CALCIUM GLUCONATE
     Indication: Parenteral nutrition
     Dosage: UNKNOWN
     Route: 041
  13. MAGNESIUM CHLORIDE [Suspect]
     Active Substance: MAGNESIUM CHLORIDE
     Indication: Parenteral nutrition
     Dosage: UNKNOWN
     Route: 041
  14. DIETARY SUPPLEMENT [Suspect]
     Active Substance: DIETARY SUPPLEMENT
     Indication: Parenteral nutrition
     Route: 041

REACTIONS (2)
  - Lactobacillus infection [Recovering/Resolving]
  - Sepsis [Recovering/Resolving]

NARRATIVE: CASE EVENT DATE: 20180401
